FAERS Safety Report 4725919-3 (Version None)
Quarter: 2005Q3

REPORT INFORMATION
  Report Type: 
  Country: None (occurrence: None)
  Receive Date: 20050727
  Receipt Date: 20050718
  Transmission Date: 20060218
  Serious: Yes (Death)
  Sender: FDA-Public Use
  Company Number: KR-JNJFOC-20050700814

PATIENT
  Sex: Male
  Weight: 52 kg

DRUGS (1)
  1. SPORANOX [Suspect]
     Route: 042
     Dates: start: 20040917

REACTIONS (1)
  - SEPSIS [None]
